FAERS Safety Report 8006506-0 (Version None)
Quarter: 2011Q4

REPORT INFORMATION
  Report Type: 
  Country: None (occurrence: None)
  Receive Date: 20111226
  Receipt Date: 20111221
  Transmission Date: 20120403
  Serious: Yes (Death, Hospitalization, Other)
  Sender: FDA-Public Use
  Company Number: PHHY2011EC111604

PATIENT
  Sex: Male

DRUGS (1)
  1. EXFORGE [Suspect]
     Dosage: 1 DF, (160/5 MG ONE TABLET DAILY)
     Dates: start: 20090101, end: 20110601

REACTIONS (7)
  - FAECES DISCOLOURED [None]
  - HEPATIC HAEMORRHAGE [None]
  - HEPATIC LESION [None]
  - HEPATIC MASS [None]
  - MALAISE [None]
  - ABDOMINAL PAIN UPPER [None]
  - HYPOTENSION [None]
